FAERS Safety Report 5924296-X (Version None)
Quarter: 2008Q4

REPORT INFORMATION
  Report Type: 
  Country: None (occurrence: None)
  Receive Date: 20081015
  Receipt Date: 20081001
  Transmission Date: 20090506
  Serious: Yes (Other)
  Sender: FDA-Public Use
  Company Number: GXKR2008IT09425

PATIENT
  Age: 65 Year
  Sex: Male

DRUGS (12)
  1. FLUCONAZOLE [Suspect]
     Indication: SEPSIS
     Dosage: 400 MG, ONCE/SINGLE, INTRAVENOUS; 100 MG, QD, INTRAVENOUS
     Route: 042
  2. EVEROLIMUS (EVEROLIMUS) [Suspect]
     Indication: IMMUNOSUPPRESSION
     Dosage: 0.75 MG, BID, ORAL; 0.25 MG; QD, ORAL
     Route: 048
  3. VORICONAZOLE (VORICONAZOLE) [Suspect]
     Indication: BRONCHOPULMONARY ASPERGILLOSIS
     Dosage: 400 MG, BID, INTRAVENOUS; 200 MG, BID, INTRAVENOUS
     Route: 042
  4. VORICONAZOLE (VORICONAZOLE) [Suspect]
     Indication: SEPSIS
     Dosage: 400 MG, BID, INTRAVENOUS; 200 MG, BID, INTRAVENOUS
     Route: 042
  5. TEICOPLANIN (TEICOPLANIN) [Concomitant]
  6. PIPERACILLIN W/TAZOBACTAM (PIPERACILLIN TAZOBACTAM) [Concomitant]
  7. RANITIDINE [Concomitant]
  8. HEPARIN [Concomitant]
  9. METHYLPREDNISOLONE 16MG TAB [Concomitant]
  10. OCTREOTIDE ACETATE [Concomitant]
  11. INSULIN (INSULIN) [Concomitant]
  12. FUROSEMIDE [Concomitant]

REACTIONS (4)
  - BRONCHOPULMONARY ASPERGILLOSIS [None]
  - DRUG INTERACTION [None]
  - DRUG LEVEL INCREASED [None]
  - GENERAL PHYSICAL HEALTH DETERIORATION [None]
